FAERS Safety Report 26011270 (Version 5)
Quarter: 2025Q4

REPORT INFORMATION
  Report Type: Report from Study
  Country: US (occurrence: US)
  Receive Date: 20251107
  Receipt Date: 20251230
  Transmission Date: 20260117
  Serious: Yes (Hospitalization)
  Sender: SANOFI AVENTIS
  Company Number: US-SA-2025SA323425

PATIENT
  Age: 46 Year
  Sex: Male
  Weight: 117.9 kg

DRUGS (17)
  1. TEPLIZUMAB-MZWV [Suspect]
     Active Substance: TEPLIZUMAB-MZWV
     Indication: Diabetes prophylaxis
     Dosage: 65.000UG/M2 QD
     Route: 042
     Dates: start: 20250908, end: 20250908
  2. TEPLIZUMAB-MZWV [Suspect]
     Active Substance: TEPLIZUMAB-MZWV
     Dosage: 1030 MCG , 1X
     Route: 042
     Dates: start: 20250917, end: 20250917
  3. TEPLIZUMAB-MZWV [Suspect]
     Active Substance: TEPLIZUMAB-MZWV
     Dosage: 1030 MCG , 1X
     Route: 042
     Dates: start: 20250918, end: 20250918
  4. TEPLIZUMAB-MZWV [Suspect]
     Active Substance: TEPLIZUMAB-MZWV
     Dosage: 1030 MCG , 1X
     Route: 042
     Dates: start: 20250919, end: 20250919
  5. TEPLIZUMAB-MZWV [Suspect]
     Active Substance: TEPLIZUMAB-MZWV
     Dosage: 500 MCG , 1X
     Route: 042
     Dates: start: 20250911, end: 20250911
  6. TEPLIZUMAB-MZWV [Suspect]
     Active Substance: TEPLIZUMAB-MZWV
     Dosage: 1030 MCG , 1X
     Route: 042
     Dates: start: 20250920, end: 20250920
  7. TEPLIZUMAB-MZWV [Suspect]
     Active Substance: TEPLIZUMAB-MZWV
     Dosage: 1030 MCG , 1X
     Route: 042
     Dates: start: 20250912, end: 20250912
  8. TEPLIZUMAB-MZWV [Suspect]
     Active Substance: TEPLIZUMAB-MZWV
     Dosage: 1030 MCG , 1X
     Route: 042
     Dates: start: 20250921, end: 20250921
  9. TEPLIZUMAB-MZWV [Suspect]
     Active Substance: TEPLIZUMAB-MZWV
     Dosage: 125 MCG, 1X
     Route: 042
     Dates: start: 20250909, end: 20250909
  10. TEPLIZUMAB-MZWV [Suspect]
     Active Substance: TEPLIZUMAB-MZWV
     Dosage: 250 MCG, 1X
     Route: 042
     Dates: start: 20250910, end: 20250910
  11. TEPLIZUMAB-MZWV [Suspect]
     Active Substance: TEPLIZUMAB-MZWV
     Dosage: 1030 MCG , 1X
     Route: 042
     Dates: start: 20250915, end: 20250915
  12. TEPLIZUMAB-MZWV [Suspect]
     Active Substance: TEPLIZUMAB-MZWV
     Dosage: 1030 MCG , 1X
     Route: 042
     Dates: start: 20250916, end: 20250916
  13. TEPLIZUMAB-MZWV [Suspect]
     Active Substance: TEPLIZUMAB-MZWV
     Dosage: 1030 MCG , 1X
     Route: 042
     Dates: start: 20250913, end: 20250913
  14. TEPLIZUMAB-MZWV [Suspect]
     Active Substance: TEPLIZUMAB-MZWV
     Dosage: 1030 MCG , 1X
     Route: 042
     Dates: start: 20250914, end: 20250914
  15. ONDANSETRON [Concomitant]
     Active Substance: ONDANSETRON
     Indication: Premedication
     Dosage: 4 MG , ONCE BEFORE INFUSION
     Dates: start: 20250908, end: 20250921
  16. DIPHENHYDRAMINE [Concomitant]
     Active Substance: DIPHENHYDRAMINE
     Indication: Premedication
     Dosage: 25 MG . ONCE BEFORE INFUSION
     Dates: start: 20250908, end: 20250921
  17. ACETAMINOPHEN [Concomitant]
     Active Substance: ACETAMINOPHEN
     Indication: Premedication
     Dosage: 650 MG , ONCE BEFORE INFUSION
     Dates: start: 20250908, end: 20250921

REACTIONS (14)
  - Pyrexia [Recovered/Resolved]
  - Malaise [Recovered/Resolved]
  - Condition aggravated [Recovered/Resolved]
  - Serum ferritin abnormal [Unknown]
  - C-reactive protein abnormal [Unknown]
  - Blood fibrinogen abnormal [Unknown]
  - Blood lactate dehydrogenase abnormal [Unknown]
  - Prothrombin time abnormal [Unknown]
  - Lymphocyte count decreased [Unknown]
  - Fibrin D dimer increased [Unknown]
  - Neutrophil count increased [Unknown]
  - Blood calcium decreased [Unknown]
  - Platelet count decreased [Unknown]
  - Blood glucose increased [Unknown]

NARRATIVE: CASE EVENT DATE: 20250101
